FAERS Safety Report 9255293 (Version 1)
Quarter: 2013Q2

REPORT INFORMATION
  Report Type: Spontaneous
  Country: DE (occurrence: DE)
  Receive Date: 20130425
  Receipt Date: 20130425
  Transmission Date: 20140414
  Serious: Yes (Hospitalization)
  Sender: FDA-Public Use
  Company Number: DE-ASTRAZENECA-2013SE25880

PATIENT
  Age: 60 Year
  Sex: Female
  Weight: 58 kg

DRUGS (5)
  1. BRILIQUE [Suspect]
     Indication: CORONARY ARTERIAL STENT INSERTION
     Dosage: 90, 1 DOSAGE FORM TWO TIMES DAILY
     Route: 048
     Dates: start: 20121108, end: 20121204
  2. ASS 100 [Concomitant]
     Indication: CORONARY ARTERY DISEASE
     Dosage: 100, 1 DOSAGE FORM DAILY
     Route: 048
  3. SIMVASTATIN [Concomitant]
     Indication: CORONARY ARTERY DISEASE
     Dosage: 20, 1 DOSAGE FORM DAILY
     Route: 048
  4. NEBIVOLOL [Concomitant]
     Indication: CORONARY ARTERY DISEASE
     Dosage: 5, 1 DOSAGE FORM DAILY
     Route: 048
  5. VIANI [Concomitant]
     Indication: CHRONIC OBSTRUCTIVE PULMONARY DISEASE
     Route: 048

REACTIONS (2)
  - Eosinophilia [Unknown]
  - Pruritus generalised [Unknown]
